FAERS Safety Report 18077236 (Version 1)
Quarter: 2020Q3

REPORT INFORMATION
  Report Type: Spontaneous
  Country: HR (occurrence: HR)
  Receive Date: 20200727
  Receipt Date: 20200727
  Transmission Date: 20201103
  Serious: Yes (Other)
  Sender: FDA-Public Use
  Company Number: HR-PFIZER INC-2020283581

PATIENT
  Age: 14 Year
  Sex: Female

DRUGS (2)
  1. ZELDOX [Suspect]
     Active Substance: ZIPRASIDONE
     Dosage: 1 DF, DAILY
  2. ZELDOX [Suspect]
     Active Substance: ZIPRASIDONE
     Dosage: 3 DF, 1X/DAY, 1 DF = 1 TBL
     Route: 048
     Dates: start: 20200504, end: 20200504

REACTIONS (2)
  - Intentional product use issue [Unknown]
  - Suicide attempt [Unknown]

NARRATIVE: CASE EVENT DATE: 20200504
